FAERS Safety Report 9264967 (Version 3)
Quarter: 2013Q3

REPORT INFORMATION
  Report Type: Spontaneous
  Country: US (occurrence: None)
  Receive Date: 20130425
  Receipt Date: 20130822
  Transmission Date: 20140515
  Serious: Yes (Hospitalization, Other)
  Sender: FDA-Public Use
  Company Number: AUR-APL-2013-03248

PATIENT
  Age: 35 Year
  Sex: Female

DRUGS (5)
  1. RISPERIDONE [Suspect]
     Indication: SLEEP DISORDER
     Dosage: (1 MG, 1 D), UNKNOWN
     Dates: start: 20130103, end: 201303
  2. LYRICA (PREGABALIN) [Suspect]
     Indication: FIBROMYALGIA
     Dosage: 600 MG (200 MG, 3 IN 1 D), UNKNOWN
     Dates: start: 201104
  3. LYRICA (PREGABALIN) [Suspect]
     Indication: SCIATICA
     Dosage: 600 MG (200 MG, 3 IN 1 D), UNKNOWN
     Dates: start: 201104
  4. EFFEXOR [Suspect]
     Indication: DEPRESSION
     Dosage: 150 MG (150 MG, 1 IN 1 D), UNKNOWN)
     Dates: start: 20121101, end: 201303
  5. OXYCONTIN (OXYCODONE HYDROCHLORIDE) [Suspect]
     Indication: PAIN
     Dosage: 120 MG (30 MG, 4 IN 1 D), UNKNOWN
     Dates: start: 20120730, end: 201303

REACTIONS (7)
  - Depression [None]
  - Diplopia [None]
  - Migraine [None]
  - Treatment noncompliance [None]
  - Drug dose omission [None]
  - Hemiplegia [None]
  - Aphonia [None]
